FAERS Safety Report 8306399-8 (Version None)
Quarter: 2012Q2

REPORT INFORMATION
  Report Type: 
  Country: None (occurrence: None)
  Receive Date: 20120423
  Receipt Date: 20120412
  Transmission Date: 20120825
  Serious: Yes (Other)
  Sender: FDA-Public Use
  Company Number: US-ELI_LILLY_AND_COMPANY-US201204004888

PATIENT
  Sex: Female

DRUGS (4)
  1. HUMALOG [Suspect]
     Dosage: 5 TO 7 U, UNKNOWN
  2. GLIPIZIDE [Concomitant]
     Dosage: UNK
  3. HUMALOG [Suspect]
     Indication: DIABETES MELLITUS
     Dosage: 5 TO 7 U, UNKNOWN
  4. METFORMIN HCL [Concomitant]
     Dosage: UNK

REACTIONS (2)
  - MOBILITY DECREASED [None]
  - KNEE ARTHROPLASTY [None]
